FAERS Safety Report 21200510 (Version 1)
Quarter: 2022Q3

REPORT INFORMATION
  Report Type: Spontaneous
  Country: US (occurrence: None)
  Receive Date: 20220810
  Receipt Date: 20220810
  Transmission Date: 20221027
  Serious: Yes (Hospitalization)
  Sender: FDA-Public Use
  Company Number: None

PATIENT
  Age: 76 Year
  Sex: Female
  Weight: 74.9 kg

DRUGS (5)
  1. RITUXIMAB [Suspect]
     Active Substance: RITUXIMAB
  2. CYCLOPHOSPHAMIDE [Suspect]
     Active Substance: CYCLOPHOSPHAMIDE
  3. DOXORUBICIN [Suspect]
     Active Substance: DOXORUBICIN
  4. VINCRISTINE [Suspect]
     Active Substance: VINCRISTINE
  5. PREDNISONE [Suspect]
     Active Substance: PREDNISONE

REACTIONS (7)
  - Fall [None]
  - Tachycardia [None]
  - Hypotension [None]
  - Pancytopenia [None]
  - Acute kidney injury [None]
  - Hypokalaemia [None]
  - Urinary tract infection [None]

NARRATIVE: CASE EVENT DATE: 20220805
